FAERS Safety Report 14983628 (Version 1)
Quarter: 2018Q2

REPORT INFORMATION
  Report Type: Spontaneous
  Country: DE (occurrence: DE)
  Receive Date: 20180607
  Receipt Date: 20180607
  Transmission Date: 20180711
  Serious: Yes (Hospitalization)
  Sender: FDA-Public Use
  Company Number: DE-PFIZER INC-2018228162

PATIENT
  Age: 87 Year
  Sex: Female

DRUGS (8)
  1. METOCLOPRAMIDE. [Suspect]
     Active Substance: METOCLOPRAMIDE
     Dosage: NK MG, 3X/DAILY
     Route: 065
  2. DOXEPIN [Suspect]
     Active Substance: DOXEPIN
     Dosage: 50 MG, 1X/DAY  (0-0-1-0)
     Route: 065
  3. CANDESARTAN. [Concomitant]
     Active Substance: CANDESARTAN
     Dosage: 32 MG, 1X/DAY (1-0-0-0)
     Route: 065
  4. LORAZEPAM. [Concomitant]
     Active Substance: LORAZEPAM
     Dosage: 1 MG, 0-0-0-0.5
     Route: 065
  5. SERTRALINE HCL [Suspect]
     Active Substance: SERTRALINE HYDROCHLORIDE
     Dosage: 50 MG, 1X/DAY  (1-0-0-0)
     Route: 065
  6. TORASEMID [Concomitant]
     Active Substance: TORSEMIDE
     Dosage: 10 MG, 2X/DAY  1-0-1-0
     Route: 065
  7. METOPROLOL. [Concomitant]
     Active Substance: METOPROLOL
     Dosage: 190 MG, (0.5-0-0.5-0)
     Route: 065
  8. ELIQUIS [Concomitant]
     Active Substance: APIXABAN
     Dosage: 2.5 MG, 2X/DAY ( 1-0-1-0)
     Route: 065

REACTIONS (5)
  - Drug prescribing error [Unknown]
  - Anxiety [Unknown]
  - Dizziness [Unknown]
  - Arrhythmia [Unknown]
  - Tachycardia [Unknown]
